FAERS Safety Report 8140433-3 (Version None)
Quarter: 2012Q1

REPORT INFORMATION
  Report Type: 
  Country: None (occurrence: None)
  Receive Date: 20120214
  Receipt Date: 20120214
  Transmission Date: 20120608
  Serious: Yes (Hospitalization)
  Sender: FDA-Public Use
  Company Number: None

PATIENT
  Sex: Female

DRUGS (1)
  1. REVATIO [Suspect]
     Indication: PULMONARY ARTERIAL HYPERTENSION
     Dosage: 20 MG TID PO
     Route: 048
     Dates: start: 20100727, end: 20120208

REACTIONS (2)
  - AMMONIA INCREASED [None]
  - LOCALISED INTRAABDOMINAL FLUID COLLECTION [None]
